FAERS Safety Report 9950552 (Version 1)
Quarter: 2014Q1

REPORT INFORMATION
  Report Type: Report from Study
  Country: US (occurrence: US)
  Receive Date: 20140304
  Receipt Date: 20140304
  Transmission Date: 20141002
  Serious: No
  Sender: FDA-Public Use
  Company Number: US-ABBVIE-13P-163-1066922-00

PATIENT
  Age: 53 Year
  Sex: Male
  Weight: 173.43 kg

DRUGS (8)
  1. HUMIRA [Suspect]
     Indication: CROHN^S DISEASE
     Route: 058
     Dates: start: 201302
  2. HUMIRA [Suspect]
     Route: 058
     Dates: start: 201202, end: 201302
  3. PLAVIX [Concomitant]
     Indication: UNEVALUABLE EVENT
  4. PREDNISONE [Concomitant]
     Indication: PRODUCT USED FOR UNKNOWN INDICATION
  5. DICYCLOMINE [Concomitant]
     Indication: PRODUCT USED FOR UNKNOWN INDICATION
  6. ATIVAN [Concomitant]
     Indication: PRODUCT USED FOR UNKNOWN INDICATION
  7. RESTORIL [Concomitant]
     Indication: PRODUCT USED FOR UNKNOWN INDICATION
  8. HYDROCODONE [Concomitant]
     Indication: PRODUCT USED FOR UNKNOWN INDICATION

REACTIONS (15)
  - Burning sensation [Recovered/Resolved]
  - Hypoaesthesia [Recovered/Resolved]
  - Burning sensation [Not Recovered/Not Resolved]
  - Paraesthesia [Not Recovered/Not Resolved]
  - Pain in extremity [Not Recovered/Not Resolved]
  - Diarrhoea [Recovered/Resolved]
  - Drug effect decreased [Recovered/Resolved]
  - Rash vesicular [Not Recovered/Not Resolved]
  - Hypoaesthesia [Recovered/Resolved]
  - Burning sensation [Not Recovered/Not Resolved]
  - Hypoaesthesia [Not Recovered/Not Resolved]
  - Paraesthesia [Not Recovered/Not Resolved]
  - Hypoaesthesia [Not Recovered/Not Resolved]
  - Paraesthesia [Not Recovered/Not Resolved]
  - Pain in extremity [Not Recovered/Not Resolved]
